FAERS Safety Report 12686902 (Version 2)
Quarter: 2018Q4

REPORT INFORMATION
  Report Type: Spontaneous
  Country: US (occurrence: US)
  Receive Date: 20160825
  Receipt Date: 20181224
  Transmission Date: 20190204
  Serious: Yes (Other)
  Sender: FDA-Public Use
  Company Number: US-JAZZ-2016-US-006844

PATIENT
  Age: 49 Year
  Sex: Female

DRUGS (66)
  1. COENZYME Q10 [Concomitant]
     Active Substance: UBIDECARENONE
  2. FEXOFENADINE HCL [Concomitant]
     Active Substance: FEXOFENADINE HYDROCHLORIDE
  3. YUCCA [Concomitant]
  4. BIOTIN [Concomitant]
     Active Substance: BIOTIN
  5. FLUTICASONE PROPIONATE. [Concomitant]
     Active Substance: FLUTICASONE PROPIONATE
  6. GLUTATHIONE [Concomitant]
     Active Substance: GLUTATHIONE
  7. SILYBUM MARIANUM [Concomitant]
     Active Substance: DIETARY SUPPLEMENT\HERBALS\MILK THISTLE
  8. VITAMIN B12 [Concomitant]
     Active Substance: CYANOCOBALAMIN
  9. EXCEDRIN MIGRAINE [Concomitant]
     Active Substance: ACETAMINOPHEN\ASPIRIN\CAFFEINE
  10. ASCORBIC ACID. [Concomitant]
     Active Substance: ASCORBIC ACID
  11. EPIPEN JR [Concomitant]
     Active Substance: EPINEPHRINE
  12. MIGRANAL [Concomitant]
     Active Substance: DIHYDROERGOTAMINE MESYLATE
  13. VITAMIN D3 [Concomitant]
     Active Substance: CHOLECALCIFEROL
  14. GUAIFENESIN. [Concomitant]
     Active Substance: GUAIFENESIN
  15. SUMATRIPTAN SUCCINATE. [Concomitant]
     Active Substance: SUMATRIPTAN SUCCINATE
  16. HYDROCORTISONE ACE [Concomitant]
  17. ONDANSETRON [Concomitant]
     Active Substance: ONDANSETRON
  18. CHLORZOXAZONE. [Concomitant]
     Active Substance: CHLORZOXAZONE
  19. MAGNESIUM GLUCONATE [Concomitant]
     Active Substance: MAGNESIUM GLUCONATE
  20. VITAMIN B6 [Concomitant]
     Active Substance: PYRIDOXINE HYDROCHLORIDE
  21. GLUCOSAMINE SULFATE [Concomitant]
     Active Substance: GLUCOSAMINE SULFATE
  22. ZYRTEC [Suspect]
     Active Substance: CETIRIZINE HYDROCHLORIDE
     Dosage: UNKNOWN DOSE
  23. CETIRIZINE HCL [Concomitant]
     Active Substance: CETIRIZINE HYDROCHLORIDE
  24. CIMETIDINE [Concomitant]
     Active Substance: CIMETIDINE
  25. NADOLOL. [Concomitant]
     Active Substance: NADOLOL
  26. CALCIUM CARBONATE. [Concomitant]
     Active Substance: CALCIUM CARBONATE
  27. QUERCETIN DIHYDRATE [Concomitant]
  28. SODIUM CHLORIDE. [Concomitant]
     Active Substance: SODIUM CHLORIDE
  29. EUTERPE OLERACEA FRUIT [Concomitant]
  30. AMITRIPTYLINE HCL [Concomitant]
     Active Substance: AMITRIPTYLINE
  31. GASTROCROM [Concomitant]
     Active Substance: CROMOLYN SODIUM
  32. DIHYDROERGOTAMINE [Concomitant]
     Active Substance: DIHYDROERGOTAMINE
  33. AZITHROMYCIN ANHYDROUS. [Concomitant]
     Active Substance: AZITHROMYCIN ANHYDROUS
  34. XYREM [Suspect]
     Active Substance: SODIUM OXYBATE
     Indication: CATAPLEXY
     Dosage: DOSE ADJUSTMENTS
     Route: 048
  35. SLIPPERY ELM [Concomitant]
     Active Substance: ELM
  36. MAGNEBIND [Concomitant]
  37. THEANINE [Concomitant]
     Active Substance: THEANINE
  38. XYREM [Suspect]
     Active Substance: SODIUM OXYBATE
     Dosage: 3.75 G, BID
     Route: 048
  39. ALPHA LIPOIC ACID [Concomitant]
     Active Substance: .ALPHA.-LIPOIC ACID
  40. L-METHIONINE [Concomitant]
  41. KETOCONAZOLE. [Concomitant]
     Active Substance: KETOCONAZOLE
  42. MINOCYCLINE HCL [Concomitant]
     Active Substance: MINOCYCLINE HYDROCHLORIDE
  43. LORATADINE. [Concomitant]
     Active Substance: LORATADINE
  44. LYRICA [Concomitant]
     Active Substance: PREGABALIN
  45. VERAPAMIL [Concomitant]
     Active Substance: VERAPAMIL HYDROCHLORIDE
  46. ACIDOPHILIS [Concomitant]
     Active Substance: LACTOBACILLUS ACIDOPHILUS
  47. DILTIAZEM. [Concomitant]
     Active Substance: DILTIAZEM
  48. METHYLCOBALAMIN. [Concomitant]
     Active Substance: METHYLCOBALAMIN
  49. XYREM [Suspect]
     Active Substance: SODIUM OXYBATE
     Indication: NARCOLEPSY
     Dosage: 2.25 G, BID
     Route: 048
     Dates: start: 201007, end: 201008
  50. XYREM [Suspect]
     Active Substance: SODIUM OXYBATE
     Dosage: 4.5 G, BID
     Route: 048
     Dates: start: 201105
  51. BOSWELLIA SERRATA [Concomitant]
  52. DEXAMETHASONE. [Concomitant]
     Active Substance: DEXAMETHASONE
  53. ALLERGAN [Concomitant]
     Active Substance: PAPAIN
  54. MOLYBDENUM [Concomitant]
     Active Substance: MOLYBDENUM
  55. FISH OIL [Concomitant]
     Active Substance: FISH OIL
  56. ORPHENADRINE [Suspect]
     Active Substance: ORPHENADRINE
     Indication: PRODUCT USED FOR UNKNOWN INDICATION
  57. CROMOLYN SODIUM. [Concomitant]
     Active Substance: CROMOLYN SODIUM
  58. FLAXSEED [Concomitant]
     Active Substance: FLAX SEED
  59. CURCUMIN [Concomitant]
     Active Substance: CURCUMIN
  60. NALTREXONE [Concomitant]
     Active Substance: NALTREXONE
  61. PROGESTERONE. [Concomitant]
     Active Substance: PROGESTERONE
  62. RHODIOLA ROSEA [Concomitant]
     Active Substance: HERBALS
  63. TAURINE [Concomitant]
     Active Substance: TAURINE
  64. PHENYLALANINE [Concomitant]
     Active Substance: PHENYLALANINE
  65. CURCUMA LONGA ROOT [Concomitant]
     Active Substance: HERBALS\TURMERIC
  66. ESTRADIOL. [Concomitant]
     Active Substance: ESTRADIOL

REACTIONS (13)
  - Loss of consciousness [Unknown]
  - Fatigue [Unknown]
  - Ligament sprain [Unknown]
  - Face injury [Unknown]
  - Wrist fracture [Unknown]
  - Hypotension [Not Recovered/Not Resolved]
  - Abdominal discomfort [Unknown]
  - Dizziness [Unknown]
  - Memory impairment [Not Recovered/Not Resolved]
  - Post-traumatic stress disorder [Unknown]
  - Orthostatic intolerance [Not Recovered/Not Resolved]
  - Fall [Unknown]
  - Anxiety [Unknown]

NARRATIVE: CASE EVENT DATE: 2014
